FAERS Safety Report 13071751 (Version 1)
Quarter: 2016Q4

REPORT INFORMATION
  Report Type: Spontaneous
  Country: US (occurrence: US)
  Receive Date: 20161228
  Receipt Date: 20161228
  Transmission Date: 20170207
  Serious: No
  Sender: FDA-Public Use
  Company Number: None

PATIENT
  Age: 58 Year
  Sex: Female

DRUGS (1)
  1. IBRANCE [Suspect]
     Active Substance: PALBOCICLIB
     Indication: BREAST CANCER
     Dosage: DAILY FOR 21 DAYS, THEN 7
     Route: 048
     Dates: end: 20161223

REACTIONS (2)
  - Hypophagia [None]
  - Diarrhoea [None]

NARRATIVE: CASE EVENT DATE: 20161223
